FAERS Safety Report 25449606 (Version 1)
Quarter: 2025Q2

REPORT INFORMATION
  Report Type: Spontaneous
  Country: US (occurrence: US)
  Receive Date: 20250618
  Receipt Date: 20250618
  Transmission Date: 20250716
  Serious: No
  Sender: ALEXION PHARMACEUTICALS
  Company Number: US-AstraZeneca-CH-00891067A

PATIENT

DRUGS (1)
  1. TAGRISSO [Suspect]
     Active Substance: OSIMERTINIB
     Indication: Non-small cell lung cancer metastatic

REACTIONS (3)
  - Liver function test increased [Unknown]
  - Liver function test increased [Unknown]
  - Hepatic enzyme increased [Unknown]
